FAERS Safety Report 7996934-1 (Version None)
Quarter: 2011Q4

REPORT INFORMATION
  Report Type: 
  Country: None (occurrence: None)
  Receive Date: 20111216
  Receipt Date: 20111210
  Transmission Date: 20120403
  Serious: Yes (Hospitalization, Other)
  Sender: FDA-Public Use
  Company Number: 127492

PATIENT
  Age: 9 Year
  Sex: Female

DRUGS (1)
  1. VALPROATE SODIUM [Suspect]
     Indication: CONVULSION
     Dosage: 196MG/KG

REACTIONS (12)
  - MEDICATION ERROR [None]
  - HYPERAMMONAEMIA [None]
  - PUPILLARY REFLEX IMPAIRED [None]
  - OXYGEN SATURATION DECREASED [None]
  - PROTHROMBIN TIME PROLONGED [None]
  - PLATELET COUNT DECREASED [None]
  - HEART RATE INCREASED [None]
  - WHITE BLOOD CELL COUNT INCREASED [None]
  - TOXICITY TO VARIOUS AGENTS [None]
  - OVERDOSE [None]
  - SUICIDE ATTEMPT [None]
  - STUPOR [None]
